FAERS Safety Report 9919574 (Version 1)
Quarter: 2014Q1

REPORT INFORMATION
  Report Type: Spontaneous
  Country: RS (occurrence: RS)
  Receive Date: 20140224
  Receipt Date: 20140224
  Transmission Date: 20141002
  Serious: Yes (Hospitalization)
  Sender: FDA-Public Use
  Company Number: PHHY2014RS017630

PATIENT
  Age: 63 Year
  Sex: Female

DRUGS (9)
  1. METHOTREXATE [Suspect]
     Indication: RHEUMATOID ARTHRITIS
     Dosage: 7.5 MG, UNK
     Route: 048
     Dates: start: 200112, end: 200405
  2. METHOTREXATE [Suspect]
     Dosage: 10 MG, UNK
     Route: 048
     Dates: start: 200405, end: 200806
  3. METHOTREXATE [Suspect]
     Dosage: 15 MG, UNK
     Route: 051
     Dates: start: 200806, end: 2012
  4. RESOCHIN [Suspect]
     Indication: RHEUMATOID ARTHRITIS
     Dates: start: 201105, end: 2012
  5. DIPROFOS [Concomitant]
     Indication: RHEUMATOID ARTHRITIS
     Dosage: 1 OT, ONCE/SINGLE
     Route: 030
     Dates: start: 200405
  6. DIPROFOS [Concomitant]
     Dosage: 2 OT, UNK
     Route: 030
     Dates: start: 200806
  7. PRONISON [Concomitant]
     Indication: RHEUMATOID ARTHRITIS
     Dosage: 10 MG, QD
     Dates: start: 200806, end: 2012
  8. CORTICOSTEROIDS [Concomitant]
     Route: 051
  9. BISPHOSPHONATES [Concomitant]

REACTIONS (11)
  - Gastrointestinal disorder [Unknown]
  - Cholelithiasis [Unknown]
  - Gastritis [Unknown]
  - Weight decreased [Unknown]
  - Duodenitis [Unknown]
  - Rheumatoid arthritis [Unknown]
  - Iron deficiency anaemia [Unknown]
  - Nausea [Unknown]
  - Vomiting [Unknown]
  - Abdominal pain [Unknown]
  - Diarrhoea [Unknown]
